FAERS Safety Report 7939570-5 (Version None)
Quarter: 2011Q4

REPORT INFORMATION
  Report Type: 
  Country: None (occurrence: None)
  Receive Date: 20111125
  Receipt Date: 20110908
  Transmission Date: 20120403
  Serious: No
  Sender: FDA-Public Use
  Company Number: US-BAYER-2011-089424

PATIENT
  Sex: Male

DRUGS (4)
  1. ALEVE (CAPLET) [Suspect]
     Dosage: 3 DF, UNK
  2. MUSCLE RELAXANTS [Concomitant]
     Indication: NECK INJURY
  3. MUSCLE RELAXANTS [Concomitant]
     Indication: BACK DISORDER
  4. MUSCLE RELAXANTS [Concomitant]
     Indication: NEURALGIA

REACTIONS (3)
  - BACK DISORDER [None]
  - NECK INJURY [None]
  - NEURALGIA [None]
